FAERS Safety Report 14991054 (Version 1)
Quarter: 2018Q2

REPORT INFORMATION
  Report Type: Spontaneous
  Country: JP (occurrence: JP)
  Receive Date: 20180608
  Receipt Date: 20180608
  Transmission Date: 20180711
  Serious: Yes (Hospitalization, Other)
  Sender: FDA-Public Use
  Company Number: JP-VIFOR (INTERNATIONAL) INC.-VIT-2018-02045

PATIENT
  Age: 64 Year
  Sex: Male

DRUGS (3)
  1. MIRCERA [Suspect]
     Active Substance: METHOXY POLYETHYLENE GLYCOL-EPOETIN BETA
     Route: 058
     Dates: start: 20180205
  2. MIRCERA [Suspect]
     Active Substance: METHOXY POLYETHYLENE GLYCOL-EPOETIN BETA
     Route: 058
     Dates: start: 20180116, end: 20180116
  3. MIRCERA [Suspect]
     Active Substance: METHOXY POLYETHYLENE GLYCOL-EPOETIN BETA
     Indication: NEPHROGENIC ANAEMIA
     Route: 058
     Dates: start: 20160414

REACTIONS (8)
  - Anaemia [Unknown]
  - Contraindicated product administered [Unknown]
  - Aplasia pure red cell [Recovered/Resolved]
  - Dyspnoea [Unknown]
  - Respiratory distress [Unknown]
  - Cardiac failure [Unknown]
  - Parvovirus B19 infection [Unknown]
  - Chest pain [Unknown]

NARRATIVE: CASE EVENT DATE: 20171207
